FAERS Safety Report 7941307-0 (Version None)
Quarter: 2011Q4

REPORT INFORMATION
  Report Type: 
  Country: None (occurrence: None)
  Receive Date: 20111122
  Receipt Date: 20111111
  Transmission Date: 20120403
  Serious: Yes (Hospitalization, Other)
  Sender: FDA-Public Use
  Company Number: CIP09002577

PATIENT
  Age: 83 Year
  Sex: Female

DRUGS (5)
  1. SYNTHROID [Concomitant]
  2. ATIVAN [Concomitant]
  3. ATENOLOL [Concomitant]
  4. NORVASC [Concomitant]
  5. ACTONEL [Suspect]
     Dosage: 150 MG ONCE MONTHLY, ORAL
     Route: 048
     Dates: start: 20081001, end: 20090301

REACTIONS (16)
  - BONE PAIN [None]
  - TENDON PAIN [None]
  - OSTEONECROSIS OF JAW [None]
  - PAIN IN JAW [None]
  - CLOSTRIDIAL INFECTION [None]
  - PRIMARY SEQUESTRUM [None]
  - SKIN MASS [None]
  - SCAB [None]
  - LOSS OF CONTROL OF LEGS [None]
  - PRURITUS [None]
  - NEUROPATHY PERIPHERAL [None]
  - TOOTH ABSCESS [None]
  - NEURODEGENERATIVE DISORDER [None]
  - LIMB ASYMMETRY [None]
  - FALL [None]
  - MYALGIA [None]
